FAERS Safety Report 8486354-8 (Version None)
Quarter: 2012Q3

REPORT INFORMATION
  Report Type: 
  Country: None (occurrence: None)
  Receive Date: 20120703
  Receipt Date: 20120627
  Transmission Date: 20120928
  Serious: Yes (Death)
  Sender: FDA-Public Use
  Company Number: US-GLAXOSMITHKLINE-A0983059A

PATIENT
  Age: 16 Year
  Sex: Male

DRUGS (7)
  1. OLANZAPINE [Concomitant]
  2. VOTRIENT [Suspect]
     Indication: BONE NEOPLASM MALIGNANT
     Dosage: 600MG PER DAY
     Route: 048
     Dates: start: 20120517, end: 20120601
  3. AMOXICILLIN [Concomitant]
  4. BACLOFEN [Concomitant]
  5. PRILOSEC [Concomitant]
  6. ONDANSETRON HCL [Concomitant]
  7. ZOFRAN [Concomitant]

REACTIONS (1)
  - DEATH [None]
